FAERS Safety Report 15599235 (Version 1)
Quarter: 2018Q4

REPORT INFORMATION
  Report Type: Spontaneous
  Country: US (occurrence: US)
  Receive Date: 20181108
  Receipt Date: 20181108
  Transmission Date: 20190205
  Serious: No
  Sender: FDA-Public Use
  Company Number: US-PFIZER INC-2018446972

PATIENT
  Sex: Female

DRUGS (2)
  1. MOTRIN [Suspect]
     Active Substance: IBUPROFEN
     Indication: OROPHARYNGEAL PAIN
     Dosage: UNK
  2. ADVIL [Suspect]
     Active Substance: IBUPROFEN
     Indication: OROPHARYNGEAL PAIN
     Dosage: UNK

REACTIONS (6)
  - Hypersensitivity [Unknown]
  - Drug ineffective for unapproved indication [Unknown]
  - Lip swelling [Unknown]
  - Urticaria [Unknown]
  - Swelling face [Unknown]
  - Product use issue [Unknown]
